FAERS Safety Report 7312843-5 (Version None)
Quarter: 2011Q1

REPORT INFORMATION
  Report Type: 
  Country: None (occurrence: None)
  Receive Date: 20110224
  Receipt Date: 20110214
  Transmission Date: 20110831
  Serious: Yes (Other)
  Sender: FDA-Public Use
  Company Number: JP-WATSON-2011-02050

PATIENT
  Age: 59 Year
  Sex: Male

DRUGS (1)
  1. FLUOROURACIL [Suspect]
     Indication: OESOPHAGEAL CARCINOMA
     Dosage: 800 MG/M2, DAYS 1-5
     Route: 042

REACTIONS (6)
  - DYSPHAGIA [None]
  - COGNITIVE DISORDER [None]
  - DYSARTHRIA [None]
  - ABNORMAL BEHAVIOUR [None]
  - NUCLEAR MAGNETIC RESONANCE IMAGING BRAIN NORMAL [None]
  - LEUKOENCEPHALOPATHY [None]
